FAERS Safety Report 9675872 (Version 2)
Quarter: 2013Q4

REPORT INFORMATION
  Report Type: Spontaneous
  Country: JP (occurrence: JP)
  Receive Date: 20131107
  Receipt Date: 20131112
  Transmission Date: 20140711
  Serious: Yes (Other)
  Sender: FDA-Public Use
  Company Number: JP-GLAXOSMITHKLINE-B0938575A

PATIENT
  Age: 90 Year
  Sex: Female

DRUGS (1)
  1. ZOVIRAX [Suspect]
     Indication: HERPES ZOSTER
     Route: 042

REACTIONS (6)
  - Depressed level of consciousness [Recovering/Resolving]
  - Restlessness [Unknown]
  - Dehydration [Unknown]
  - Skin discolouration [Unknown]
  - Somnolence [Unknown]
  - Depressed level of consciousness [Unknown]
